FAERS Safety Report 14156524 (Version 2)
Quarter: 2018Q1

REPORT INFORMATION
  Report Type: Spontaneous
  Country: FR (occurrence: FR)
  Receive Date: 20171103
  Receipt Date: 20180216
  Transmission Date: 20180508
  Serious: Yes (Death, Hospitalization, Other)
  Sender: FDA-Public Use
  Company Number: FR-B.I. PHARMACEUTICALS,INC./RIDGEFIELD-2017-BI-058344

PATIENT
  Age: 88 Year
  Sex: Male

DRUGS (1)
  1. PRAXBIND [Suspect]
     Active Substance: IDARUCIZUMAB
     Indication: OVERDOSE
     Dosage: STRENGTH: 2.5 G/50 ML
     Route: 042
     Dates: start: 20171009, end: 20171009

REACTIONS (7)
  - Anticoagulation drug level increased [Recovered/Resolved]
  - Neutropenia [Recovered/Resolved]
  - Respiratory failure [Fatal]
  - Respiratory tract infection [Fatal]
  - Myelodysplastic syndrome [Fatal]
  - Rebound effect [Recovered/Resolved]
  - Thrombocytopenia [Unknown]

NARRATIVE: CASE EVENT DATE: 20171009
